FAERS Safety Report 8031586-6 (Version None)
Quarter: 2012Q1

REPORT INFORMATION
  Report Type: 
  Country: None (occurrence: None)
  Receive Date: 20120109
  Receipt Date: 20120103
  Transmission Date: 20120608
  Serious: Yes (Other)
  Sender: FDA-Public Use
  Company Number: IT-ABBOTT-12P-083-0888812-00

PATIENT
  Sex: Male

DRUGS (6)
  1. FOLINE [Concomitant]
     Indication: VITAMIN B6 DEFICIENCY
     Route: 048
  2. BENADON [Concomitant]
     Indication: VITAMIN B6 DEFICIENCY
     Route: 048
  3. NORVIR [Suspect]
     Indication: HIV INFECTION
     Route: 048
     Dates: start: 20111207, end: 20111209
  4. PREZISTA [Suspect]
     Indication: HIV INFECTION
     Route: 048
     Dates: start: 20111207, end: 20111209
  5. TRUVADA [Suspect]
     Indication: HIV INFECTION
     Route: 048
     Dates: start: 20111207, end: 20111209
  6. COUMADIN [Concomitant]
     Indication: THROMBOSIS PROPHYLAXIS
     Route: 048

REACTIONS (4)
  - PYREXIA [None]
  - INSOMNIA [None]
  - ABDOMINAL PAIN [None]
  - OCCIPITAL NEURALGIA [None]
